FAERS Safety Report 21602149 (Version 2)
Quarter: 2022Q4

REPORT INFORMATION
  Report Type: Spontaneous
  Country: US (occurrence: US)
  Receive Date: 20221116
  Receipt Date: 20221209
  Transmission Date: 20230112
  Serious: Yes (Hospitalization, Other)
  Sender: FDA-Public Use
  Company Number: US-BIOVITRUM-2022US08354

PATIENT
  Age: 2 Year
  Sex: Female

DRUGS (1)
  1. KINERET [Suspect]
     Active Substance: ANAKINRA
     Indication: Still^s disease
     Dates: start: 20180603

REACTIONS (4)
  - Pulmonary haemorrhage [Unknown]
  - Tracheal haemorrhage [Unknown]
  - Device related infection [Unknown]
  - Off label use [Unknown]

NARRATIVE: CASE EVENT DATE: 20180630
